FAERS Safety Report 4478686-5 (Version None)
Quarter: 2004Q4

REPORT INFORMATION
  Report Type: 
  Country: None (occurrence: None)
  Receive Date: 20041019
  Receipt Date: 20041013
  Transmission Date: 20050328
  Serious: Yes (Other)
  Sender: FDA-Public Use
  Company Number: PHEH2004US11024

PATIENT
  Age: 76 Year
  Sex: Female

DRUGS (1)
  1. LAMISIL [Suspect]
     Indication: CANDIDIASIS
     Dosage: 250 MG, ONCE/SINGLE
     Route: 048

REACTIONS (3)
  - BLOOD PRESSURE INCREASED [None]
  - DIZZINESS [None]
  - HEADACHE [None]
